FAERS Safety Report 19997641 (Version 1)
Quarter: 2021Q4

REPORT INFORMATION
  Report Type: Spontaneous
  Country: US (occurrence: US)
  Receive Date: 20211026
  Receipt Date: 20211026
  Transmission Date: 20220303
  Serious: No
  Sender: FDA-Public Use
  Company Number: US-JNJFOC-20211036199

PATIENT
  Sex: Female

DRUGS (1)
  1. WOMENS ROGAINE UNSCENTED [Suspect]
     Active Substance: MINOXIDIL
     Indication: Alopecia
     Dosage: CAP FULL
     Route: 061
     Dates: start: 2013

REACTIONS (3)
  - Application site ulcer [Unknown]
  - Inappropriate schedule of product administration [Unknown]
  - Overdose [Unknown]

NARRATIVE: CASE EVENT DATE: 20130101
